FAERS Safety Report 19402443 (Version 1)
Quarter: 2021Q2

REPORT INFORMATION
  Report Type: Report from Study
  Country: BE (occurrence: NL)
  Receive Date: 20210610
  Receipt Date: 20210610
  Transmission Date: 20210717
  Serious: Yes (Hospitalization)
  Sender: FDA-Public Use
  Company Number: NL-TEVA-2021-NL-1920004

PATIENT

DRUGS (6)
  1. CYCLOPHOSPHAMIDE. [Suspect]
     Active Substance: CYCLOPHOSPHAMIDE
     Indication: DRUG THERAPY
     Dosage: MATERNAL CYCLICAL THERAPY; RECEIVED 5 CYCLES OF THE REGIMEN
     Route: 064
  2. ETOPOSIDE. [Suspect]
     Active Substance: ETOPOSIDE
     Indication: DRUG THERAPY
     Dosage: MATERNAL CYCLICAL THERAPY; RECEIVED 5 CYCLES OF THE REGIMEN
     Route: 064
  3. VINCRISTINE [Suspect]
     Active Substance: VINCRISTINE
     Indication: DRUG THERAPY
     Dosage: MATERNAL CYCLICAL THERAPY; RECEIVED 5 CYCLES OF THE REGIMEN
     Route: 064
  4. RITUXIMAB. [Suspect]
     Active Substance: RITUXIMAB
     Indication: DRUG THERAPY
     Dosage: MATERNAL CYCLICAL THERAPY; RECEIVED 5 CYCLES OF THE REGIMEN
     Route: 064
  5. DOXORUBICIN [Suspect]
     Active Substance: DOXORUBICIN
     Indication: DRUG THERAPY
     Dosage: MATERNAL CYCLICAL THERAPY; RECEIVED 5 CYCLES OF THE REGIMEN
     Route: 064
  6. PREDNISONE. [Suspect]
     Active Substance: PREDNISONE
     Indication: DRUG THERAPY
     Dosage: MATERNAL CYCLICAL THERAPY; RECEIVED 5 CYCLES OF THE REGIMEN
     Route: 064

REACTIONS (3)
  - Foetal exposure during pregnancy [Unknown]
  - Pneumonia [Unknown]
  - Premature baby [Unknown]
